FAERS Safety Report 5662407-4 (Version None)
Quarter: 2008Q1

REPORT INFORMATION
  Report Type: 
  Country: None (occurrence: None)
  Receive Date: 20080313
  Receipt Date: 20080305
  Transmission Date: 20080703
  Serious: Yes (Hospitalization)
  Sender: FDA-Public Use
  Company Number: US-JNJFOC-20080301832

PATIENT
  Sex: Female
  Weight: 68.49 kg

DRUGS (16)
  1. FENTANYL TRANSDERMAL SYSTEM [Suspect]
     Route: 062
  2. FENTANYL TRANSDERMAL SYSTEM [Suspect]
     Indication: TRIGEMINAL NEURALGIA
     Route: 062
  3. FENTANYL TRANSDERMAL SYSTEM [Suspect]
     Indication: TRIGEMINAL NEURALGIA
     Route: 062
  4. WELLBUTRIN [Suspect]
     Indication: DEPRESSION
     Route: 048
  5. METOPROLOL TARTRATE [Concomitant]
     Indication: MIGRAINE PROPHYLAXIS
     Route: 048
  6. TEGRETOL [Concomitant]
     Indication: TRIGEMINAL NEURALGIA
     Route: 048
  7. BACLOFEN [Concomitant]
     Indication: MUSCLE RELAXANT THERAPY
     Route: 048
  8. COMPAZINE [Concomitant]
     Indication: NAUSEA
     Route: 048
  9. CIMETIDINE [Concomitant]
     Indication: GASTROINTESTINAL DISORDER THERAPY
     Route: 048
  10. ZANTAC [Concomitant]
     Indication: ANTACID THERAPY
     Dosage: TWO 75MG TABLETS TAKEN AT BEDTIME
     Route: 048
  11. INDOMETHACIN [Concomitant]
     Indication: PAIN IN JAW
     Route: 048
  12. OXYBUTYNIN CHLORIDE [Concomitant]
     Indication: URINARY RETENTION
     Dosage: HALF OF A 5MG TABLET
     Route: 048
  13. ELAVIL [Concomitant]
     Indication: DEPRESSION
     Dosage: AT BEDTIME
     Route: 048
  14. LORAZEPAM [Concomitant]
     Indication: ANXIETY
     Route: 048
  15. LISINOPRIL [Concomitant]
     Indication: BLOOD PRESSURE
     Route: 048
  16. MORPHINE SULFATE [Concomitant]
     Indication: BREAKTHROUGH PAIN
     Route: 048

REACTIONS (6)
  - ANXIETY [None]
  - APPLICATION SITE ERYTHEMA [None]
  - APPLICATION SITE IRRITATION [None]
  - APPLICATION SITE PRURITUS [None]
  - GRAND MAL CONVULSION [None]
  - INSOMNIA [None]
